FAERS Safety Report 6666143-7 (Version None)
Quarter: 2010Q1

REPORT INFORMATION
  Report Type: 
  Country: None (occurrence: None)
  Receive Date: 20100330
  Receipt Date: 20100323
  Transmission Date: 20100710
  Serious: Yes (Hospitalization, Other)
  Sender: FDA-Public Use
  Company Number: ALL1-2010-01647

PATIENT
  Age: 76 Year
  Sex: Male
  Weight: 83 kg

DRUGS (15)
  1. FOSRENOL [Suspect]
     Indication: HYPERPHOSPHATAEMIA
     Dosage: 250 MG, 2X/DAY: BID, BREAKFAST AND LUNCH, ORAL; SEE IMAGE
     Route: 048
     Dates: start: 20080101, end: 20100207
  2. FOSRENOL [Suspect]
     Indication: RENAL FAILURE
     Dosage: 250 MG, 2X/DAY: BID, BREAKFAST AND LUNCH, ORAL; SEE IMAGE
     Route: 048
     Dates: start: 20080101, end: 20100207
  3. FOSRENOL [Suspect]
     Indication: HYPERPHOSPHATAEMIA
     Dosage: 250 MG, 2X/DAY: BID, BREAKFAST AND LUNCH, ORAL; SEE IMAGE
     Route: 048
     Dates: start: 20080101, end: 20100207
  4. FOSRENOL [Suspect]
     Indication: RENAL FAILURE
     Dosage: 250 MG, 2X/DAY: BID, BREAKFAST AND LUNCH, ORAL; SEE IMAGE
     Route: 048
     Dates: start: 20080101, end: 20100207
  5. FOSRENOL [Suspect]
     Indication: HYPERPHOSPHATAEMIA
     Dosage: 250 MG, 2X/DAY: BID, BREAKFAST AND LUNCH, ORAL; SEE IMAGE
     Route: 048
     Dates: start: 20100208, end: 20100309
  6. FOSRENOL [Suspect]
     Indication: RENAL FAILURE
     Dosage: 250 MG, 2X/DAY: BID, BREAKFAST AND LUNCH, ORAL; SEE IMAGE
     Route: 048
     Dates: start: 20100208, end: 20100309
  7. FOSRENOL [Suspect]
     Indication: HYPERPHOSPHATAEMIA
     Dosage: 250 MG, 2X/DAY: BID, BREAKFAST AND LUNCH, ORAL; SEE IMAGE
     Route: 048
     Dates: start: 20100208, end: 20100309
  8. FOSRENOL [Suspect]
     Indication: RENAL FAILURE
     Dosage: 250 MG, 2X/DAY: BID, BREAKFAST AND LUNCH, ORAL; SEE IMAGE
     Route: 048
     Dates: start: 20100208, end: 20100309
  9. FOSRENOL [Suspect]
     Indication: HYPERPHOSPHATAEMIA
     Dosage: 250 MG, 2X/DAY: BID, BREAKFAST AND LUNCH, ORAL; SEE IMAGE
     Route: 048
     Dates: start: 20100208, end: 20100309
  10. FOSRENOL [Suspect]
     Indication: RENAL FAILURE
     Dosage: 250 MG, 2X/DAY: BID, BREAKFAST AND LUNCH, ORAL; SEE IMAGE
     Route: 048
     Dates: start: 20100208, end: 20100309
  11. FOSRENOL [Suspect]
     Indication: HYPERPHOSPHATAEMIA
     Dosage: 250 MG, 2X/DAY: BID, BREAKFAST AND LUNCH, ORAL; SEE IMAGE
     Route: 048
     Dates: start: 20100310
  12. FOSRENOL [Suspect]
     Indication: RENAL FAILURE
     Dosage: 250 MG, 2X/DAY: BID, BREAKFAST AND LUNCH, ORAL; SEE IMAGE
     Route: 048
     Dates: start: 20100310
  13. FOSRENOL [Suspect]
     Indication: HYPERPHOSPHATAEMIA
     Dosage: 250 MG, 2X/DAY: BID, BREAKFAST AND LUNCH, ORAL; SEE IMAGE
     Route: 048
     Dates: start: 20100310
  14. FOSRENOL [Suspect]
     Indication: RENAL FAILURE
     Dosage: 250 MG, 2X/DAY: BID, BREAKFAST AND LUNCH, ORAL; SEE IMAGE
     Route: 048
     Dates: start: 20100310
  15. DIALYVITE 3000 (ASCORBIC ACID, FOLIC ACID, VITAMIN-B-KOMPLEX STANDARD) [Concomitant]

REACTIONS (5)
  - ADVERSE EVENT [None]
  - BLOOD PHOSPHORUS DECREASED [None]
  - BLOOD PHOSPHORUS INCREASED [None]
  - RENAL FAILURE [None]
  - VASCULAR GRAFT COMPLICATION [None]
